FAERS Safety Report 10200663 (Version 1)
Quarter: 2014Q2

REPORT INFORMATION
  Report Type: Spontaneous
  Country: US (occurrence: US)
  Receive Date: 20140528
  Receipt Date: 20140528
  Transmission Date: 20141212
  Serious: No
  Sender: FDA-Public Use
  Company Number: US-TEVA-470297USA

PATIENT
  Sex: Female

DRUGS (1)
  1. CAMRESE [Suspect]
     Indication: MENSTRUAL DISORDER
     Dates: start: 201312

REACTIONS (3)
  - Chest pain [Not Recovered/Not Resolved]
  - Dyspepsia [Not Recovered/Not Resolved]
  - Urticaria [Not Recovered/Not Resolved]
